FAERS Safety Report 4393466-7 (Version None)
Quarter: 2004Q3

REPORT INFORMATION
  Report Type: 
  Country: None (occurrence: None)
  Receive Date: 20040701
  Receipt Date: 20040618
  Transmission Date: 20050211
  Serious: Yes (Hospitalization, Disabling, Other)
  Sender: FDA-Public Use
  Company Number: 2004040893

PATIENT
  Age: 62 Year
  Sex: Male

DRUGS (5)
  1. LIPITOR [Suspect]
     Indication: HYPERCHOLESTEROLAEMIA
     Dosage: 10 MG (10 MG, 1 IN 1 D),ORAL
     Route: 048
     Dates: start: 20030206, end: 20030801
  2. METFORMIN HCL [Concomitant]
  3. CANDESARTAN CILEXETIL (CANDESARTAN CILEXETIL) [Concomitant]
  4. ALL OTHER THERAPEUTIC PRODUCTS (ALL OTHER THERAPEUTIC) [Concomitant]
  5. ESTRADIOL [Concomitant]

REACTIONS (27)
  - ARTHRALGIA [None]
  - BACK PAIN [None]
  - BURSITIS [None]
  - CONTUSION [None]
  - DIFFICULTY IN WALKING [None]
  - DRUG INEFFECTIVE [None]
  - FEELING ABNORMAL [None]
  - GAIT DISTURBANCE [None]
  - HAEMATOMA [None]
  - HYPOAESTHESIA [None]
  - INFECTION [None]
  - INJURY [None]
  - MUSCLE ATROPHY [None]
  - MUSCLE CRAMP [None]
  - MUSCLE DISORDER [None]
  - MUSCLE RUPTURE [None]
  - NEUROPATHIC PAIN [None]
  - NOSOCOMIAL INFECTION [None]
  - OEDEMA [None]
  - PAIN [None]
  - PAIN IN EXTREMITY [None]
  - PARESIS [None]
  - PERONEAL NERVE PALSY [None]
  - SENSORY DISTURBANCE [None]
  - STAPHYLOCOCCAL INFECTION [None]
  - SURGICAL PROCEDURE REPEATED [None]
  - SWELLING [None]
